FAERS Safety Report 10172338 (Version 2)
Quarter: 2014Q2

REPORT INFORMATION
  Report Type: Report from Study
  Country: ES (occurrence: ES)
  Receive Date: 20140515
  Receipt Date: 20140515
  Transmission Date: 20141212
  Serious: Yes (Other)
  Sender: FDA-Public Use
  Company Number: ES-ROCHE-1373515

PATIENT
  Sex: 0

DRUGS (4)
  1. RIBAVIRIN [Suspect]
     Indication: HEPATITIS C
     Route: 065
  2. RIBAVIRIN [Suspect]
     Dosage: DOSE REDUCED
     Route: 065
  3. PEG-INTERFERON ALFA 2A [Suspect]
     Indication: HEPATITIS C
     Route: 065
  4. TELAPREVIR [Suspect]
     Indication: HEPATITIS C
     Route: 065

REACTIONS (7)
  - Hyperbilirubinaemia [Unknown]
  - Anaemia [Unknown]
  - Neutropenia [Unknown]
  - Lymphopenia [Unknown]
  - Thrombocytopenia [Unknown]
  - Hyperuricaemia [Unknown]
  - Blood creatinine abnormal [Unknown]
